FAERS Safety Report 7623074-3 (Version None)
Quarter: 2011Q3

REPORT INFORMATION
  Report Type: 
  Country: None (occurrence: None)
  Receive Date: 20110720
  Receipt Date: 20110707
  Transmission Date: 20111222
  Serious: Yes (Other)
  Sender: FDA-Public Use
  Company Number: US-CELGENEUS-163-21880-11071059

PATIENT
  Sex: Female
  Weight: 58.1 kg

DRUGS (4)
  1. REVLIMID [Suspect]
     Indication: NON-HODGKIN'S LYMPHOMA
     Dosage: 25 MILLIGRAM
     Route: 048
     Dates: start: 20081201
  2. REVLIMID [Suspect]
     Dosage: 20-15MG
     Route: 048
     Dates: start: 20090501
  3. GABAPENTIN [Concomitant]
     Route: 065
  4. REVLIMID [Suspect]
     Dosage: 15 MILLIGRAM
     Route: 048
     Dates: start: 20110201

REACTIONS (4)
  - PRURITUS [None]
  - BALANCE DISORDER [None]
  - HYPOAESTHESIA [None]
  - JOINT SWELLING [None]
